FAERS Safety Report 21344579 (Version 1)
Quarter: 2022Q3

REPORT INFORMATION
  Report Type: Spontaneous
  Country: US (occurrence: None)
  Receive Date: 20220916
  Receipt Date: 20220916
  Transmission Date: 20221027
  Serious: No
  Sender: FDA-Public Use
  Company Number: None

PATIENT
  Age: 46 Year
  Sex: Female
  Weight: 60.75 kg

DRUGS (8)
  1. SUTAB [Suspect]
     Active Substance: MAGNESIUM SULFATE\POTASSIUM CHLORIDE\SODIUM SULFATE
     Indication: Colonoscopy
     Dosage: FREQUENCY : DAILY;?
     Route: 048
     Dates: start: 20220913, end: 20220913
  2. Lo-loestin [Concomitant]
  3. oemprazole [Concomitant]
  4. VITAMINS [Concomitant]
     Active Substance: VITAMINS
  5. VITAMIN D [Concomitant]
     Active Substance: VITAMIN D NOS
  6. CALCIUM [Concomitant]
     Active Substance: CALCIUM
  7. omega 3s [Concomitant]
  8. VITAMIN B12 [Concomitant]
     Active Substance: CYANOCOBALAMIN

REACTIONS (10)
  - Genital burning sensation [None]
  - Pruritus genital [None]
  - Erythema [None]
  - Ocular hyperaemia [None]
  - Chills [None]
  - Dehydration [None]
  - Asthenia [None]
  - Nausea [None]
  - Vomiting [None]
  - Nonspecific reaction [None]

NARRATIVE: CASE EVENT DATE: 20220913
